FAERS Safety Report 5956855-2 (Version None)
Quarter: 2008Q4

REPORT INFORMATION
  Report Type: 
  Country: None (occurrence: None)
  Receive Date: 20081118
  Receipt Date: 20081110
  Transmission Date: 20090506
  Serious: Yes (Hospitalization, Other)
  Sender: FDA-Public Use
  Company Number: CA-PFIZER INC-2008085559

PATIENT
  Age: 31 Year
  Sex: Male

DRUGS (1)
  1. CHANTIX [Suspect]
     Indication: SMOKING CESSATION THERAPY
     Route: 048
     Dates: start: 20080613, end: 20080707

REACTIONS (6)
  - AGGRESSION [None]
  - ANXIETY [None]
  - HALLUCINATION, AUDITORY [None]
  - NERVOUSNESS [None]
  - PSYCHOTIC DISORDER [None]
  - SUICIDAL IDEATION [None]
